FAERS Safety Report 7159168-9 (Version None)
Quarter: 2010Q4

REPORT INFORMATION
  Report Type: 
  Country: None (occurrence: None)
  Receive Date: 20101214
  Receipt Date: 20101202
  Transmission Date: 20110411
  Serious: Yes (Hospitalization)
  Sender: FDA-Public Use
  Company Number: US-ELI_LILLY_AND_COMPANY-US201009001311

PATIENT
  Sex: Female

DRUGS (1)
  1. FORTEO [Suspect]
     Indication: OSTEOPOROSIS
     Dosage: 20 UG, DAILY (1/D)

REACTIONS (8)
  - CONTUSION [None]
  - COUGH [None]
  - FALL [None]
  - FATIGUE [None]
  - HEAD INJURY [None]
  - HOSPITALISATION [None]
  - NASAL CONGESTION [None]
  - NASOPHARYNGITIS [None]
